FAERS Safety Report 23291270 (Version 2)
Quarter: 2023Q4

REPORT INFORMATION
  Report Type: Spontaneous
  Country: US (occurrence: US)
  Receive Date: 20231213
  Receipt Date: 20231213
  Transmission Date: 20240110
  Serious: No
  Sender: FDA-Public Use
  Company Number: US-ALVOGEN-2023089233

PATIENT
  Sex: Female
  Weight: 68 kg

DRUGS (1)
  1. FENTANYL [Suspect]
     Active Substance: FENTANYL\FENTANYL CITRATE
     Indication: Short-bowel syndrome
     Dosage: STRENGTH: 100 MCG?4 PATCHES EVERY 24 HOURS.

REACTIONS (2)
  - Off label use [Unknown]
  - Product availability issue [Unknown]
